FAERS Safety Report 14517268 (Version 1)
Quarter: 2018Q1

REPORT INFORMATION
  Report Type: Report from Study
  Country: TH (occurrence: TH)
  Receive Date: 20180212
  Receipt Date: 20180212
  Transmission Date: 20180509
  Serious: Yes (Death, Other)
  Sender: FDA-Public Use
  Company Number: TH-ROCHE-2069607

PATIENT

DRUGS (3)
  1. INFLIXIMAB [Suspect]
     Active Substance: INFLIXIMAB
     Indication: RHEUMATOID ARTHRITIS
     Route: 065
  2. ETANERCEPT [Suspect]
     Active Substance: ETANERCEPT
     Indication: RHEUMATOID ARTHRITIS
     Route: 065
  3. RITUXIMAB. [Suspect]
     Active Substance: RITUXIMAB
     Indication: RHEUMATOID ARTHRITIS
     Route: 065

REACTIONS (9)
  - Myocardial infarction [Fatal]
  - Pneumonia aspiration [Fatal]
  - Neoplasm malignant [Unknown]
  - Hepatitis B [Fatal]
  - Lung neoplasm malignant [Fatal]
  - Pneumonia [Fatal]
  - Infection [Unknown]
  - Mycobacterial infection [Unknown]
  - Tuberculosis [Unknown]
